FAERS Safety Report 12566009 (Version 4)
Quarter: 2017Q1

REPORT INFORMATION
  Report Type: Spontaneous
  Country: US (occurrence: US)
  Receive Date: 20160718
  Receipt Date: 20170109
  Transmission Date: 20170428
  Serious: No
  Sender: FDA-Public Use
  Company Number: US-GLAXOSMITHKLINE-US2016GSK097515

PATIENT
  Age: 69 Year
  Sex: Male

DRUGS (3)
  1. TANZEUM [Suspect]
     Active Substance: ALBIGLUTIDE
     Indication: TYPE 2 DIABETES MELLITUS
     Dosage: 50 MG, WE
  2. TANZEUM [Suspect]
     Active Substance: ALBIGLUTIDE
     Dosage: 50 MG, WE
     Route: 042
  3. TANZEUM [Suspect]
     Active Substance: ALBIGLUTIDE
     Dosage: 50 MG, WE
     Route: 042
     Dates: start: 2014

REACTIONS (5)
  - Accidental exposure to product [Unknown]
  - Device leakage [Unknown]
  - Device use error [Unknown]
  - Cough [Unknown]
  - Product quality issue [Unknown]

NARRATIVE: CASE EVENT DATE: 20160704
